FAERS Safety Report 18285300 (Version 1)
Quarter: 2020Q3

REPORT INFORMATION
  Report Type: Spontaneous
  Country: US (occurrence: US)
  Receive Date: 20200918
  Receipt Date: 20200918
  Transmission Date: 20201103
  Serious: Yes (Other)
  Sender: FDA-Public Use
  Company Number: US-TEVA-2020-US-1828931

PATIENT
  Sex: Male

DRUGS (9)
  1. HYDROCODONE BITARTRATE AND ACETAMINOPHEN [Suspect]
     Active Substance: ACETAMINOPHEN\HYDROCODONE BITARTRATE
     Indication: INJURY
     Route: 065
     Dates: start: 2000
  2. HYDROMORPHONE [Suspect]
     Active Substance: HYDROMORPHONE
     Indication: INJURY
     Route: 065
     Dates: start: 2000
  3. OXYCODONE [Suspect]
     Active Substance: OXYCODONE
     Indication: INJURY
     Dosage: FORM OF ADMIN: IMMEDIATE RELEASE
     Route: 065
     Dates: start: 2000
  4. OXYCODONE AND ACETAMINOPHEN [Suspect]
     Active Substance: ACETAMINOPHEN\OXYCODONE HYDROCHLORIDE
     Indication: INJURY
     Route: 065
     Dates: start: 2000
  5. OXYCONTIN [Suspect]
     Active Substance: OXYCODONE HYDROCHLORIDE
     Indication: INJURY
     Route: 065
     Dates: start: 2000
  6. TRAMADOL. [Suspect]
     Active Substance: TRAMADOL
     Indication: INJURY
     Route: 065
     Dates: start: 2000
  7. OXYCODONE [Suspect]
     Active Substance: OXYCODONE
     Indication: INJURY
     Dosage: FORM OF ADMIN: EXTENDED RELEASE
     Route: 065
     Dates: start: 2000
  8. MORPHINE [Suspect]
     Active Substance: MORPHINE
     Indication: INJURY
     Route: 065
     Dates: start: 2000
  9. DILAUDID [Suspect]
     Active Substance: HYDROMORPHONE HYDROCHLORIDE
     Indication: INJURY
     Route: 065
     Dates: start: 2000

REACTIONS (2)
  - Overdose [Unknown]
  - Drug dependence [Unknown]
